FAERS Safety Report 13351309 (Version 1)
Quarter: 2017Q1

REPORT INFORMATION
  Report Type: Spontaneous
  Country: US (occurrence: US)
  Receive Date: 20170320
  Receipt Date: 20170320
  Transmission Date: 20170429
  Serious: No
  Sender: FDA-Public Use
  Company Number: US-BAYER-2017-052505

PATIENT
  Sex: Male

DRUGS (3)
  1. MIRALAX [Suspect]
     Active Substance: POLYETHYLENE GLYCOL 3350
     Indication: RECTAL TENESMUS
     Dosage: 1 DF, QD
     Route: 048
  2. MIRALAX [Suspect]
     Active Substance: POLYETHYLENE GLYCOL 3350
     Indication: RECTAL TENESMUS
     Dosage: 2 DF, QD
     Route: 048
  3. MIRALAX [Suspect]
     Active Substance: POLYETHYLENE GLYCOL 3350
     Indication: RECTAL TENESMUS
     Dosage: 1 DF, QD
     Route: 048

REACTIONS (6)
  - Drug ineffective [Unknown]
  - Diarrhoea [Unknown]
  - Flatulence [Unknown]
  - Product use issue [Unknown]
  - Wrong technique in product usage process [None]
  - Off label use [None]
